FAERS Safety Report 5527972-6 (Version None)
Quarter: 2007Q4

REPORT INFORMATION
  Report Type: 
  Country: None (occurrence: None)
  Receive Date: 20071109
  Receipt Date: 20070416
  Transmission Date: 20080405
  Serious: Yes (Other)
  Sender: FDA-Public Use
  Company Number: PHEH2006US02488

PATIENT
  Age: 73 Year
  Sex: Female
  Weight: 58.5 kg

DRUGS (11)
  1. ESTRADERM [Suspect]
     Indication: MENOPAUSAL SYMPTOMS
     Dosage: 0.5 MG, BIW, TRANSDERMAL
     Route: 062
     Dates: start: 19870112
  2. PREMARIN [Suspect]
     Indication: MENOPAUSAL SYMPTOMS
     Dosage: 0.3MG QD DAYS 1-25 ; 0.125MG QD, DAYS 1-25
     Dates: start: 19831001, end: 19880301
  3. PREMARIN [Suspect]
     Indication: MENOPAUSAL SYMPTOMS
     Dosage: 0.3MG QD DAYS 1-25 ; 0.125MG QD, DAYS 1-25
     Dates: start: 19981101, end: 20010701
  4. PROVERA [Suspect]
     Indication: MENOPAUSAL SYMPTOMS
     Dosage: 2.5MG QD DAYS 15-25 ; 10MG QD DAYS 15-25
     Dates: start: 19831001, end: 19880301
  5. PROVERA [Suspect]
     Indication: MENOPAUSAL SYMPTOMS
     Dosage: 2.5MG QD DAYS 15-25 ; 10MG QD DAYS 15-25
     Dates: start: 19881101, end: 19910701
  6. PROVERA [Suspect]
     Indication: MENOPAUSAL SYMPTOMS
     Dosage: 2.5MG QD DAYS 15-25 ; 10MG QD DAYS 15-25
     Dates: start: 19921001, end: 19980701
  7. PROVERA [Suspect]
     Indication: MENOPAUSAL SYMPTOMS
     Dosage: 2.5MG QD DAYS 15-25 ; 10MG QD DAYS 15-25
     Dates: start: 19990701, end: 19991001
  8. MEDROXYPROGESTERONE [Suspect]
     Indication: MENOPAUSAL SYMPTOMS
     Dates: start: 19980501, end: 19990701
  9. MEDROXYPROGESTERONE [Suspect]
     Indication: MENOPAUSAL SYMPTOMS
     Dates: start: 20000101, end: 20010701
  10. SYNTHROID [Concomitant]
  11. FOSAMAX [Concomitant]

REACTIONS (9)
  - BREAST CANCER IN SITU [None]
  - BREAST MICROCALCIFICATION [None]
  - BREAST NECROSIS [None]
  - BREAST RECONSTRUCTION [None]
  - FIBROCYSTIC BREAST DISEASE [None]
  - MASTECTOMY [None]
  - OESTROGEN RECEPTOR ASSAY POSITIVE [None]
  - OSTEOPENIA [None]
  - PROGESTERONE RECEPTOR ASSAY POSITIVE [None]
